FAERS Safety Report 23741249 (Version 4)
Quarter: 2025Q2

REPORT INFORMATION
  Report Type: Report from Study
  Country: CO (occurrence: CO)
  Receive Date: 20240415
  Receipt Date: 20250613
  Transmission Date: 20250717
  Serious: Yes (Hospitalization, Other)
  Sender: TAKEDA
  Company Number: CO-TAKEDA-2023TUS059241

PATIENT
  Age: 70 Year
  Sex: Male
  Weight: 60 kg

DRUGS (1)
  1. VEDOLIZUMAB [Suspect]
     Active Substance: VEDOLIZUMAB
     Indication: Crohn^s disease
     Dates: start: 20220416, end: 20250505

REACTIONS (4)
  - Pleural effusion [Recovering/Resolving]
  - Rhinorrhoea [Unknown]
  - Treatment noncompliance [Unknown]
  - Procedural pain [Unknown]

NARRATIVE: CASE EVENT DATE: 20240403
